FAERS Safety Report 5795489-X (Version None)
Quarter: 2008Q2

REPORT INFORMATION
  Report Type: 
  Country: None (occurrence: None)
  Receive Date: 20080630
  Receipt Date: 20080619
  Transmission Date: 20081010
  Serious: Yes (Other)
  Sender: FDA-Public Use
  Company Number: JP-PFIZER INC-2008043407

PATIENT
  Sex: Male
  Weight: 65.5 kg

DRUGS (11)
  1. EPLERENONE [Suspect]
     Dosage: DAILY DOSE:50MG
     Route: 048
     Dates: start: 20080428, end: 20080515
  2. OLMETEC [Suspect]
     Indication: HYPERTENSION
     Dosage: DAILY DOSE:20MG
     Route: 048
     Dates: start: 20080401, end: 20080515
  3. ASPIRIN [Suspect]
     Indication: THROMBOSIS PROPHYLAXIS
     Dosage: DAILY DOSE:100MG
     Route: 048
     Dates: start: 20080401, end: 20080515
  4. RABEPRAZOLE SODIUM [Suspect]
     Indication: PROPHYLAXIS AGAINST GASTROINTESTINAL ULCER
     Dosage: DAILY DOSE:10MG
     Route: 048
     Dates: start: 20080401, end: 20080515
  5. CARVEDILOL [Suspect]
     Indication: HYPERTENSION
     Route: 048
     Dates: start: 20080401, end: 20080515
  6. CARVEDILOL [Suspect]
     Indication: CARDIOVASCULAR EVENT PROPHYLAXIS
  7. WARFARIN SODIUM [Suspect]
     Indication: THROMBOSIS PROPHYLAXIS
     Dosage: DAILY DOSE:7MG
     Route: 048
     Dates: start: 20080401, end: 20080511
  8. URICAL [Suspect]
     Indication: HYPERURICAEMIA
     Dosage: DAILY DOSE:100MG
     Route: 048
  9. ALLOPURINOL [Suspect]
     Indication: HYPERURICAEMIA
     Dosage: DAILY DOSE:100MG
     Route: 048
     Dates: start: 20080401, end: 20080501
  10. LOXONIN [Suspect]
     Indication: PAIN
     Dosage: DAILY DOSE:60MG-FREQ:AS NEEDED
     Route: 048
     Dates: start: 20080510, end: 20080519
  11. LASIX [Concomitant]
     Route: 048

REACTIONS (1)
  - JAUNDICE [None]
